FAERS Safety Report 10243977 (Version 1)
Quarter: 2014Q2

REPORT INFORMATION
  Report Type: Spontaneous
  Country: US (occurrence: None)
  Receive Date: 20140616
  Receipt Date: 20140616
  Transmission Date: 20141212
  Serious: Yes (Other)
  Sender: FDA-Public Use
  Company Number: None

PATIENT
  Age: 51 Year
  Sex: Female

DRUGS (1)
  1. STELARA 45MG/0.5ML JANSSEN BIOTECH [Suspect]
     Indication: PSORIASIS
     Dosage: 45MG/0.5ML  Q12W  SQ
     Route: 058
     Dates: start: 20130415, end: 20131126

REACTIONS (1)
  - Weight decreased [None]
